FAERS Safety Report 8488808-7 (Version None)
Quarter: 2012Q3

REPORT INFORMATION
  Report Type: 
  Country: None (occurrence: None)
  Receive Date: 20120705
  Receipt Date: 20120626
  Transmission Date: 20120928
  Serious: No
  Sender: FDA-Public Use
  Company Number: US-B.I. PHARMACEUTICALS,INC./RIDGEFIELD-2011-BP-27673BP

PATIENT
  Age: 51 Year
  Sex: Male
  Weight: 107.5 kg

DRUGS (6)
  1. MULTIPLE UNSPECIFIED DRUGS [Concomitant]
     Indication: DIABETES MELLITUS
  2. TRADJENTA [Suspect]
     Indication: DIABETES MELLITUS
  3. GLIZA [Concomitant]
     Indication: DIABETES MELLITUS
  4. CRESTOR [Concomitant]
     Indication: BLOOD CHOLESTEROL INCREASED
  5. MULTIPLE UNSPECIFIED DRUGS [Concomitant]
     Indication: BLOOD CHOLESTEROL INCREASED
  6. NEXIUM [Concomitant]

REACTIONS (1)
  - PANCREATITIS [None]
